FAERS Safety Report 18214294 (Version 4)
Quarter: 2020Q3

REPORT INFORMATION
  Report Type: Spontaneous
  Country: US (occurrence: US)
  Receive Date: 20200831
  Receipt Date: 20200924
  Transmission Date: 20201103
  Serious: Yes (Hospitalization)
  Sender: FDA-Public Use
  Company Number: US-GLAXOSMITHKLINE-US2020AMR170948

PATIENT
  Sex: Female

DRUGS (1)
  1. ZEJULA [Suspect]
     Active Substance: NIRAPARIB
     Indication: OVARIAN CANCER
     Dosage: 200 MG, QD
     Route: 048
     Dates: start: 20200814

REACTIONS (6)
  - Feeling abnormal [Unknown]
  - Fluid intake reduced [Unknown]
  - Asthenia [Unknown]
  - Surgery [Unknown]
  - Nausea [Not Recovered/Not Resolved]
  - Feeding disorder [Unknown]
